APPROVED DRUG PRODUCT: MAREZINE
Active Ingredient: CYCLIZINE LACTATE
Strength: 50MG/ML
Dosage Form/Route: INJECTABLE;INJECTION
Application: N009495 | Product #001
Applicant: GLAXOSMITHKLINE
Approved: Approved Prior to Jan 1, 1982 | RLD: No | RS: No | Type: DISCN